FAERS Safety Report 16363427 (Version 1)
Quarter: 2019Q2

REPORT INFORMATION
  Report Type: Spontaneous
  Country: NL (occurrence: NL)
  Receive Date: 20190528
  Receipt Date: 20190528
  Transmission Date: 20190711
  Serious: Yes (Death)
  Sender: FDA-Public Use
  Company Number: NL-WHANIN PHARM. CO., LTD.-2019M1051145

PATIENT
  Age: 29 Year
  Sex: Female

DRUGS (1)
  1. CLOZAPINE. [Suspect]
     Active Substance: CLOZAPINE
     Indication: SCHIZOPHRENIA
     Dosage: UNK

REACTIONS (2)
  - Myocarditis [Fatal]
  - Cardiac failure [Fatal]

NARRATIVE: CASE EVENT DATE: 2013
